FAERS Safety Report 5325102-7 (Version None)
Quarter: 2007Q2

REPORT INFORMATION
  Report Type: 
  Country: None (occurrence: None)
  Receive Date: 20070515
  Receipt Date: 20070502
  Transmission Date: 20071010
  Serious: Yes (Other)
  Sender: FDA-Public Use
  Company Number: BR-ROCHE-496143

PATIENT
  Age: 27 Year
  Sex: Male

DRUGS (3)
  1. VESANOID [Suspect]
     Route: 048
     Dates: start: 20070315, end: 20070410
  2. DAUNORUBICIN HCL [Concomitant]
     Dates: start: 20070315, end: 20070401
  3. CYTARABINE [Concomitant]

REACTIONS (8)
  - BLOOD LACTATE DEHYDROGENASE INCREASED [None]
  - DYSPNOEA [None]
  - HYPOTENSION [None]
  - PYREXIA [None]
  - RENAL FAILURE ACUTE [None]
  - RETINOIC ACID SYNDROME [None]
  - RHABDOMYOLYSIS [None]
  - TRANSAMINASES INCREASED [None]
